FAERS Safety Report 9118718 (Version 2)
Quarter: 2013Q2

REPORT INFORMATION
  Report Type: Spontaneous
  Country: US (occurrence: US)
  Receive Date: 20130226
  Receipt Date: 20130416
  Transmission Date: 20140414
  Serious: No
  Sender: FDA-Public Use
  Company Number: US-TEVA-386808USA

PATIENT
  Age: 45 Year
  Sex: Female

DRUGS (1)
  1. COPAXONE [Suspect]
     Indication: MULTIPLE SCLEROSIS

REACTIONS (4)
  - Injection site anaesthesia [Recovered/Resolved]
  - Wrong technique in drug usage process [Recovered/Resolved]
  - Injection site erythema [Unknown]
  - Injection site pain [Unknown]
